FAERS Safety Report 4878807-6 (Version None)
Quarter: 2006Q1

REPORT INFORMATION
  Report Type: 
  Country: None (occurrence: None)
  Receive Date: 20060112
  Receipt Date: 20060105
  Transmission Date: 20060701
  Serious: Yes (Hospitalization)
  Sender: FDA-Public Use
  Company Number: FR-GILEAD-2006-0009068

PATIENT
  Age: 31 Year
  Sex: Male

DRUGS (1)
  1. HEPSERA [Suspect]
     Route: 048
     Dates: start: 20050128

REACTIONS (1)
  - NEUTROPENIA [None]
